FAERS Safety Report 7574730-7 (Version None)
Quarter: 2011Q2

REPORT INFORMATION
  Report Type: 
  Country: None (occurrence: None)
  Receive Date: 20110627
  Receipt Date: 20110624
  Transmission Date: 20111010
  Serious: Yes (Other)
  Sender: FDA-Public Use
  Company Number: GXKR2011DE02071

PATIENT
  Sex: Male

DRUGS (1)
  1. TAMSULOSIN HCL [Suspect]
     Dosage: 0.4 MG, UNK
     Route: 048

REACTIONS (5)
  - DIZZINESS [None]
  - CIRCULATORY COLLAPSE [None]
  - CARDIOVASCULAR INSUFFICIENCY [None]
  - WOUND [None]
  - FALL [None]
